FAERS Safety Report 14445226 (Version 1)
Quarter: 2018Q1

REPORT INFORMATION
  Report Type: Spontaneous
  Country: US (occurrence: US)
  Receive Date: 20180126
  Receipt Date: 20180126
  Transmission Date: 20180509
  Serious: No
  Sender: FDA-Public Use
  Company Number: US-PFIZER INC-2018032293

PATIENT
  Sex: Female

DRUGS (2)
  1. LETROZOLE. [Suspect]
     Active Substance: LETROZOLE
     Dosage: UNK [FOR 14 MONTHS]
  2. IBRANCE [Suspect]
     Active Substance: PALBOCICLIB
     Dosage: UNK [FOR 14 MONTHS]

REACTIONS (1)
  - Dysgeusia [Unknown]
